FAERS Safety Report 6194508-9 (Version None)
Quarter: 2009Q2

REPORT INFORMATION
  Report Type: 
  Country: None (occurrence: None)
  Receive Date: 20090519
  Receipt Date: 20090515
  Transmission Date: 20091009
  Serious: Yes (Hospitalization)
  Sender: FDA-Public Use
  Company Number: FR-JNJFOC-20090503522

PATIENT
  Age: 29 Year
  Sex: Female

DRUGS (2)
  1. OFLOXACIN [Suspect]
     Indication: FEBRILE NEUTROPENIA
     Route: 065
  2. CEFTRIAXONE [Suspect]
     Indication: FEBRILE NEUTROPENIA
     Route: 065

REACTIONS (3)
  - CLOSTRIDIUM DIFFICILE COLITIS [None]
  - MYALGIA [None]
  - RECTAL HAEMORRHAGE [None]
